FAERS Safety Report 10372665 (Version 2)
Quarter: 2014Q4

REPORT INFORMATION
  Report Type: Spontaneous
  Country: US (occurrence: US)
  Receive Date: 20140808
  Receipt Date: 20141205
  Transmission Date: 20150528
  Serious: No
  Sender: FDA-Public Use
  Company Number: US-BRISTOL-MYERS SQUIBB COMPANY-19205467

PATIENT
  Age: 37 Year
  Sex: Female

DRUGS (14)
  1. PROTONIX [Concomitant]
     Active Substance: PANTOPRAZOLE SODIUM
     Dosage: TAB
  2. POTASSIUM [Concomitant]
     Active Substance: POTASSIUM
     Dosage: TAB
  3. MULTIVITAMIN [Concomitant]
     Active Substance: VITAMINS
     Dosage: CAP
  4. NAPROXEN. [Concomitant]
     Active Substance: NAPROXEN
     Dosage: TAB
  5. RAPAMUNE [Concomitant]
     Active Substance: SIROLIMUS
     Dosage: TAB
  6. ACICLOVIR [Concomitant]
     Active Substance: ACYCLOVIR
     Dosage: TAB
  7. CITRACAL + D [Concomitant]
     Active Substance: CALCIUM CITRATE\VITAMIN D
     Dosage: TAB
  8. LEVAQUIN [Concomitant]
     Active Substance: LEVOFLOXACIN
     Dosage: TAB
  9. DIFLUCAN [Concomitant]
     Active Substance: FLUCONAZOLE
     Dosage: TAB
  10. VITAMIN D [Concomitant]
     Active Substance: CHOLECALCIFEROL
     Dosage: CAP,1 DF: 2000UNITS NOS.
  11. SPRYCEL [Suspect]
     Active Substance: DASATINIB
     Indication: ACUTE LYMPHOCYTIC LEUKAEMIA
     Dosage: TABS?DOSE: 2X20 MG QD
     Route: 048
  12. WELLBUTRIN [Concomitant]
     Active Substance: BUPROPION HYDROCHLORIDE
     Dosage: TAB
  13. ZOFRAN [Concomitant]
     Active Substance: ONDANSETRON HYDROCHLORIDE
     Dosage: TAB
  14. BACTRIM DS [Concomitant]
     Active Substance: SULFAMETHOXAZOLE\TRIMETHOPRIM
     Dosage: TAB,1 DF: 800-160 UNITS NOS

REACTIONS (1)
  - Alopecia [Unknown]

NARRATIVE: CASE EVENT DATE: 20130816
